FAERS Safety Report 20108438 (Version 1)
Quarter: 2021Q4

REPORT INFORMATION
  Report Type: Spontaneous
  Country: US (occurrence: US)
  Receive Date: 20211124
  Receipt Date: 20211124
  Transmission Date: 20220303
  Serious: No
  Sender: FDA-Public Use
  Company Number: US-PERRIGO-21US010750

PATIENT
  Age: 78 Year
  Sex: Male
  Weight: 83.9 kg

DRUGS (14)
  1. POLYETHYLENE GLYCOL 3350 [Suspect]
     Active Substance: POLYETHYLENE GLYCOL 3350
     Indication: Faeces hard
     Dosage: A LITTLE LESS THAN 17 G, QD
     Route: 048
     Dates: start: 202009
  2. DICLOFENAC SODIUM [Concomitant]
     Active Substance: DICLOFENAC SODIUM
     Indication: Myalgia
     Dosage: UNKNOWN, UNKNOWN
     Route: 065
  3. FLUTICASONE [Concomitant]
     Active Substance: FLUTICASONE
     Indication: Nasal congestion
     Dosage: UNKNOWN, UNKNOWN
     Route: 065
  4. FLUTICASONE [Concomitant]
     Active Substance: FLUTICASONE
     Indication: Hypersensitivity
  5. IBUPROFEN [Concomitant]
     Active Substance: IBUPROFEN
     Indication: Insomnia
     Dosage: UNKNOWN, UNKNOWN
     Route: 065
  6. IBUPROFEN [Concomitant]
     Active Substance: IBUPROFEN
     Indication: Pain
  7. KETOCONAZOLE [Concomitant]
     Active Substance: KETOCONAZOLE
     Indication: Pruritus
     Dosage: UNKNOWN, UNKNOWN
     Route: 065
  8. LEVOTHYROXINE [Concomitant]
     Active Substance: LEVOTHYROXINE
     Indication: Thyroid disorder
     Dosage: UNKNOWN, UNKNOWN
     Route: 065
  9. VITAMINS [Concomitant]
     Active Substance: VITAMINS
     Indication: Supplementation therapy
     Dosage: UNKNOWN, UNKNOWN
     Route: 065
  10. OXYBUTYNIN [Concomitant]
     Active Substance: OXYBUTYNIN
     Indication: Urinary incontinence
     Dosage: UNKNOWN, UNKNOWN
     Route: 065
  11. OXYBUTYNIN [Concomitant]
     Active Substance: OXYBUTYNIN
     Indication: Hypertonic bladder
  12. MYRBETRIQ [Concomitant]
     Active Substance: MIRABEGRON
     Indication: Hypertonic bladder
     Dosage: UNKNOWN, UNKNOWN
     Route: 065
  13. MYRBETRIQ [Concomitant]
     Active Substance: MIRABEGRON
     Indication: Urinary incontinence
  14. SIMVASTATIN [Concomitant]
     Active Substance: SIMVASTATIN
     Indication: Blood cholesterol increased
     Dosage: 10 MG, UNKNOWN
     Route: 065

REACTIONS (3)
  - Hyperkeratosis [Not Recovered/Not Resolved]
  - Underdose [Not Recovered/Not Resolved]
  - Incorrect product administration duration [Not Recovered/Not Resolved]

NARRATIVE: CASE EVENT DATE: 20200901
